FAERS Safety Report 8317079-7 (Version None)
Quarter: 2012Q2

REPORT INFORMATION
  Report Type: 
  Country: None (occurrence: None)
  Receive Date: 20120425
  Receipt Date: 20120413
  Transmission Date: 20120825
  Serious: Yes (Other)
  Sender: FDA-Public Use
  Company Number: IMP_05845_2012

PATIENT
  Age: 52 Year
  Sex: Female

DRUGS (5)
  1. OMEPRAZOLE [Suspect]
     Indication: GASTROOESOPHAGEAL REFLUX DISEASE
     Dosage: (DF)
  2. LISINOPRIL [Concomitant]
  3. METFORMIN HCL [Concomitant]
  4. MAGNESIUM [Concomitant]
  5. HYDROCHLOROTHIAZIDE [Concomitant]

REACTIONS (6)
  - BLOOD POTASSIUM DECREASED [None]
  - ELECTROLYTE IMBALANCE [None]
  - FATIGUE [None]
  - HYPOMAGNESAEMIA [None]
  - ASTHENIA [None]
  - GLYCOSYLATED HAEMOGLOBIN INCREASED [None]
